FAERS Safety Report 24370458 (Version 1)
Quarter: 2024Q3

REPORT INFORMATION
  Report Type: Spontaneous
  Country: US (occurrence: US)
  Receive Date: 20240927
  Receipt Date: 20240927
  Transmission Date: 20241017
  Serious: Yes (Death)
  Sender: RECORDATI
  Company Number: US-RECORDATI RARE DISEASE INC.-2024007385

PATIENT

DRUGS (1)
  1. ISTURISA [Suspect]
     Active Substance: OSILODROSTAT PHOSPHATE
     Indication: Cushing^s syndrome
     Dosage: 2 MG, BID (1 MG TABLET TAKING 2 TABLETS TWICE A DAY)
     Route: 048
     Dates: start: 20240908, end: 20240915

REACTIONS (1)
  - Death [Fatal]

NARRATIVE: CASE EVENT DATE: 20240915
